FAERS Safety Report 14041309 (Version 1)
Quarter: 2017Q4

REPORT INFORMATION
  Report Type: Spontaneous
  Country: US (occurrence: US)
  Receive Date: 20171004
  Receipt Date: 20171004
  Transmission Date: 20180321
  Serious: Yes (Other)
  Sender: FDA-Public Use
  Company Number: US-CELGENEUS-USA-20170908642

PATIENT
  Sex: Male

DRUGS (1)
  1. REVLIMID [Suspect]
     Active Substance: LENALIDOMIDE
     Indication: FOLLICLE CENTRE LYMPHOMA, FOLLICULAR GRADE I, II, III STAGE II
     Dosage: 25 MILLIGRAM
     Route: 048
     Dates: start: 201707

REACTIONS (2)
  - Fluid retention [Unknown]
  - Angioedema [Unknown]

NARRATIVE: CASE EVENT DATE: 2017
